FAERS Safety Report 20953199 (Version 1)
Quarter: 2022Q2

REPORT INFORMATION
  Report Type: Spontaneous
  Country: IT (occurrence: IT)
  Receive Date: 20220613
  Receipt Date: 20220613
  Transmission Date: 20220721
  Serious: Yes (Other)
  Sender: FDA-Public Use
  Company Number: IT-JNJFOC-20220608729

PATIENT
  Age: 24 Year
  Sex: Male
  Weight: 95 kg

DRUGS (3)
  1. HALDOL [Suspect]
     Active Substance: HALOPERIDOL
     Indication: Product used for unknown indication
     Dosage: ORAL SOLUTION BOTTLE 30 ML; QUANTITY: 1/2 BOTTLE
     Route: 048
  2. CHLORPROMAZINE [Suspect]
     Active Substance: CHLORPROMAZINE
     Indication: Product used for unknown indication
     Dosage: QUANTITY: 25 TABLETS, 3 TABLETS
     Route: 048
  3. EBASTINE [Suspect]
     Active Substance: EBASTINE
     Indication: Product used for unknown indication
     Dosage: QUANTITY: 20 TABLETS
     Route: 048

REACTIONS (3)
  - Intentional self-injury [Unknown]
  - Agitation [Unknown]
  - Overdose [Unknown]
